FAERS Safety Report 8098611 (Version 1)
Quarter: 2020Q3

REPORT INFORMATION
  Report Type: Report from Study
  Country: CA (occurrence: CA)
  Receive Date: 20110819
  Receipt Date: 20110819
  Transmission Date: 20201105
  Serious: Yes (Other)
  Sender: FDA-Public Use
  Company Number: CA-JNJFOC-20071102507

PATIENT
  Age: 64 Year
  Sex: Male

DRUGS (23)
  1. GOLIMUMAB [Suspect]
     Active Substance: GOLIMUMAB
     Dosage: WEEK 4
     Route: 058
     Dates: start: 20060425
  2. GRAVOL [Concomitant]
     Active Substance: DIMENHYDRINATE
     Route: 048
     Dates: start: 200302
  3. HYDROCORTISONE. [Concomitant]
     Active Substance: HYDROCORTISONE
     Route: 061
     Dates: start: 20070326
  4. TYLENOL ER [Concomitant]
     Route: 048
     Dates: start: 20031101
  5. GOLIMUMAB [Suspect]
     Active Substance: GOLIMUMAB
     Dosage: WEEK 0
     Route: 058
     Dates: start: 20060327
  6. GOLIMUMAB [Suspect]
     Active Substance: GOLIMUMAB
     Dosage: WEEK 48
     Route: 058
     Dates: start: 20070227
  7. EMOCORT [Concomitant]
     Route: 061
     Dates: start: 20060301
  8. GOLIMUMAB [Suspect]
     Active Substance: GOLIMUMAB
     Indication: PSORIATIC ARTHROPATHY
     Dosage: WEEK 40
     Route: 058
     Dates: start: 20070102
  9. GOLIMUMAB [Suspect]
     Active Substance: GOLIMUMAB
     Dosage: WEEK 28
     Route: 058
     Dates: start: 20061010
  10. GOLIMUMAB [Suspect]
     Active Substance: GOLIMUMAB
     Dosage: WEEK 20
     Route: 058
     Dates: start: 20060815
  11. GOLIMUMAB [Suspect]
     Active Substance: GOLIMUMAB
     Dosage: WEEK 12
     Route: 058
     Dates: start: 20060620
  12. DIOVAN [Concomitant]
     Active Substance: VALSARTAN
     Route: 048
     Dates: start: 20070130
  13. GOLIMUMAB [Suspect]
     Active Substance: GOLIMUMAB
     Dosage: WEEK 24
     Route: 058
     Dates: start: 20060912
  14. GOLIMUMAB [Suspect]
     Active Substance: GOLIMUMAB
     Dosage: WEEK 32
     Route: 058
     Dates: start: 20061107
  15. GOLIMUMAB [Suspect]
     Active Substance: GOLIMUMAB
     Dosage: WEEK 16
     Route: 058
     Dates: start: 20060718
  16. UREA. [Concomitant]
     Active Substance: UREA
     Route: 061
     Dates: start: 20020101
  17. FLOVENT [Concomitant]
     Active Substance: FLUTICASONE PROPIONATE
     Route: 055
     Dates: start: 200302
  18. SERC (BETAHISTINE HYDROCHLORIDE) [Concomitant]
     Active Substance: BETAHISTINE HYDROCHLORIDE
     Route: 048
     Dates: start: 200302
  19. HYDROCHLOROTHIAZIDE. [Concomitant]
     Active Substance: HYDROCHLOROTHIAZIDE
     Route: 048
     Dates: start: 20070102
  20. GOLIMUMAB [Suspect]
     Active Substance: GOLIMUMAB
     Dosage: WEEK 36
     Route: 058
     Dates: start: 20061205
  21. ALBUTEROL. [Concomitant]
     Active Substance: ALBUTEROL
     Route: 055
     Dates: start: 200302
  22. GOLIMUMAB [Suspect]
     Active Substance: GOLIMUMAB
     Dosage: WEEK 8
     Route: 058
     Dates: start: 20060523
  23. GOLIMUMAB [Suspect]
     Active Substance: GOLIMUMAB
     Dosage: WEEK 44
     Route: 058
     Dates: start: 20070130

REACTIONS (1)
  - Basal cell carcinoma [Recovered/Resolved]

NARRATIVE: CASE EVENT DATE: 20070815
